FAERS Safety Report 5327256-5 (Version None)
Quarter: 2007Q2

REPORT INFORMATION
  Report Type: 
  Country: None (occurrence: None)
  Receive Date: 20070517
  Receipt Date: 20070508
  Transmission Date: 20071010
  Serious: Yes (Hospitalization)
  Sender: FDA-Public Use
  Company Number: AU-ROCHE-481133

PATIENT
  Age: 36 Year
  Sex: Male

DRUGS (4)
  1. MYCOPHENOLATE MOFETIL [Suspect]
     Indication: DRUG USE FOR UNKNOWN INDICATION
     Route: 065
     Dates: start: 20060406
  2. TACROLIMUS [Suspect]
     Route: 065
     Dates: start: 20060619
  3. PREDNISONE TAB [Suspect]
     Indication: DRUG USE FOR UNKNOWN INDICATION
     Route: 065
  4. CYCLOSPORINE [Concomitant]
     Dosage: REPORTED AS CYCLOSPORIN-A.
     Route: 048
     Dates: start: 20060406, end: 20060619

REACTIONS (9)
  - EPSTEIN-BARR VIRAEMIA [None]
  - HEPATIC LESION [None]
  - LIVER FUNCTION TEST ABNORMAL [None]
  - LUNG NEOPLASM [None]
  - LYMPHOCYTE COUNT ABNORMAL [None]
  - LYMPHOPROLIFERATIVE DISORDER [None]
  - NON-HODGKIN'S LYMPHOMA [None]
  - URETERIC OPERATION [None]
  - URETERIC STENOSIS [None]
